FAERS Safety Report 7459671-8 (Version None)
Quarter: 2011Q2

REPORT INFORMATION
  Report Type: 
  Country: None (occurrence: None)
  Receive Date: 20110504
  Receipt Date: 20110504
  Transmission Date: 20111010
  Serious: Yes (Other)
  Sender: FDA-Public Use
  Company Number: None

PATIENT
  Age: 59 Year
  Sex: Female
  Weight: 113.3993 kg

DRUGS (2)
  1. PRAVASTATIN SODIUM [Suspect]
     Indication: LOW DENSITY LIPOPROTEIN INCREASED
     Dosage: 40 MG TABLET DAILY PO
     Route: 048
     Dates: start: 20101206, end: 20110328
  2. PRAVASTATIN SODIUM [Suspect]
     Indication: HIGH DENSITY LIPOPROTEIN DECREASED
     Dosage: 40 MG TABLET DAILY PO
     Route: 048
     Dates: start: 20101206, end: 20110328

REACTIONS (3)
  - LIP DISORDER [None]
  - SKIN FISSURES [None]
  - STOMATITIS HAEMORRHAGIC [None]
